FAERS Safety Report 25088348 (Version 2)
Quarter: 2025Q4

REPORT INFORMATION
  Report Type: Report from Study
  Country: EU (occurrence: EU)
  Receive Date: 20250318
  Receipt Date: 20251201
  Transmission Date: 20260117
  Serious: Yes (Other)
  Sender: AUROBINDO
  Company Number: EU-ROCHE-2714831

PATIENT
  Age: 11 Year
  Sex: Male
  Weight: 23 kg

DRUGS (15)
  1. PREDNISONE [Suspect]
     Active Substance: PREDNISONE
     Indication: Nephrotic syndrome
     Dosage: 20 MILLIGRAM(AFTER DARATUMUMAB INFUSION )
  2. PREDNISONE [Suspect]
     Active Substance: PREDNISONE
     Dosage: 60 MILLIGRAM/SQ. METER, EVERY OTHER DAY
  3. PREDNISONE [Suspect]
     Active Substance: PREDNISONE
     Dosage: 20 MILLIGRAM, ONCE A DAY
  4. PREDNISONE [Suspect]
     Active Substance: PREDNISONE
     Dosage: 60 MILLIGRAM/SQ. METER (2 DAY)
  5. PREDNISONE [Suspect]
     Active Substance: PREDNISONE
     Dosage: 60 MILLIGRAM/SQ. METER (2 DAY)
  6. PREDNISONE [Suspect]
     Active Substance: PREDNISONE
     Dosage: UNK ( 2 WEEK)
  7. TACROLIMUS [Suspect]
     Active Substance: TACROLIMUS
     Indication: Nephrotic syndrome
     Dosage: UNK
  8. METHYLPREDNISOLONE [Suspect]
     Active Substance: METHYLPREDNISOLONE
     Indication: Nephrotic syndrome
     Dosage: 1 MILLIGRAM/KILOGRAM
     Route: 065
  9. OBINUTUZUMAB [Suspect]
     Active Substance: OBINUTUZUMAB
     Indication: Nephrotic syndrome
     Dosage: 600 MILLIGRAM (1000 MG/1.73 M2  OVER 4 H WAS INJECTED AT DAY 0)
  10. DARATUMUMAB [Suspect]
     Active Substance: DARATUMUMAB
     Indication: Nephrotic syndrome
     Dosage: 600 MILLIGRAM (1000 MG/1.73 M2 OVER 4 H)
     Route: 065
  11. Acetaminophen7 [Concomitant]
     Indication: Product used for unknown indication
     Dosage: 15 MILLIGRAM/KILOGRAM
     Route: 065
  12. Dexchlorpheniramine7 [Concomitant]
     Indication: Product used for unknown indication
     Dosage: UNK
     Route: 065
  13. Sulfamethoxazole7 [Concomitant]
     Indication: Product used for unknown indication
     Dosage: 800 MILLIGRAM (0.33 WEEK)
     Route: 065
  14. LEVAMISOLE [Concomitant]
     Active Substance: LEVAMISOLE
     Indication: Product used for unknown indication
     Dosage: UNK
     Route: 065
  15. RITUXIMAB [Concomitant]
     Active Substance: RITUXIMAB
     Indication: Product used for unknown indication
     Dosage: UNK
     Route: 065

REACTIONS (4)
  - Hypogammaglobulinaemia [Unknown]
  - Epstein-Barr virus infection [Unknown]
  - Blood immunoglobulin G decreased [Unknown]
  - Off label use [Recovered/Resolved]
